FAERS Safety Report 5608702-6 (Version None)
Quarter: 2008Q1

REPORT INFORMATION
  Report Type: 
  Country: None (occurrence: None)
  Receive Date: 20080131
  Receipt Date: 20080124
  Transmission Date: 20080703
  Serious: Yes (Other)
  Sender: FDA-Public Use
  Company Number: US-PFIZER INC-2008007742

PATIENT
  Sex: Male

DRUGS (1)
  1. CAMPTOSAR [Suspect]

REACTIONS (4)
  - BACK PAIN [None]
  - BONE LESION [None]
  - LYMPHOPENIA [None]
  - NEUROPATHY PERIPHERAL [None]
